FAERS Safety Report 4364033-6 (Version None)
Quarter: 2004Q2

REPORT INFORMATION
  Report Type: 
  Country: None (occurrence: None)
  Receive Date: 20040519
  Receipt Date: 20040513
  Transmission Date: 20050107
  Serious: Yes (Life-Threatening)
  Sender: FDA-Public Use
  Company Number: 2004213399AU

PATIENT
  Age: 45 Year
  Sex: Female
  Weight: 112.6 kg

DRUGS (3)
  1. IDARUBICIN HCL [Suspect]
     Indication: ACUTE MYELOID LEUKAEMIA
     Dosage: 17 MG, QD, CYCLE 1, IV
     Route: 042
     Dates: start: 20040512, end: 20040512
  2. CYTARABINE [Suspect]
     Indication: ACUTE MYELOID LEUKAEMIA
     Dosage: 11.4 G, CYCLE 1
     Route: 042
     Dates: start: 20040512, end: 20040512
  3. ETOPOSIDE [Suspect]
     Indication: ACUTE MYELOID LEUKAEMIA
     Dosage: 140 MG, CYCLE 1
     Dates: start: 20040512, end: 20040512

REACTIONS (8)
  - CIRCULATORY COLLAPSE [None]
  - COAGULOPATHY [None]
  - FLUID OVERLOAD [None]
  - HYPOXIA [None]
  - LOSS OF CONSCIOUSNESS [None]
  - PYREXIA [None]
  - RENAL FAILURE ACUTE [None]
  - TUMOUR LYSIS SYNDROME [None]
